FAERS Safety Report 9313567 (Version 1)
Quarter: 2013Q2

REPORT INFORMATION
  Report Type: Spontaneous
  Country: ZA (occurrence: ZA)
  Receive Date: 20130528
  Receipt Date: 20130528
  Transmission Date: 20140414
  Serious: Yes (Death)
  Sender: FDA-Public Use
  Company Number: ZA-ASTRAZENECA-2013SE36050

PATIENT
  Age: 31 Year
  Sex: Female

DRUGS (2)
  1. BUPIVACAINE [Suspect]
     Indication: SPINAL ANAESTHESIA
     Route: 037
  2. OXYTOCIN [Concomitant]

REACTIONS (1)
  - Cardiac arrest [Fatal]
